FAERS Safety Report 6221694-4 (Version None)
Quarter: 2009Q2

REPORT INFORMATION
  Report Type: 
  Country: None (occurrence: None)
  Receive Date: 20090605
  Receipt Date: 20090529
  Transmission Date: 20091009
  Serious: Yes (Hospitalization)
  Sender: FDA-Public Use
  Company Number: US-WYE-H09545709

PATIENT
  Age: 56 Year
  Sex: Male
  Weight: 95.6 kg

DRUGS (2)
  1. TORISEL [Suspect]
     Indication: METASTATIC RENAL CELL CARCINOMA
     Dosage: 20 MG 1X PER 1 WK, INTRAVENOUS
     Route: 042
     Dates: start: 20090408
  2. BEVACIZUMAB, TEST ARTICLE IN TEMSIROLIMUS STUDY (BEVACIZUMAB, INJECTIO [Suspect]
     Indication: METASTATIC RENAL CELL CARCINOMA
     Dosage: 956 MG 1X PER 2 WK, INTRAVENOUS
     Route: 042
     Dates: start: 20090408

REACTIONS (1)
  - SUBCUTANEOUS ABSCESS [None]
